FAERS Safety Report 14383750 (Version 2)
Quarter: 2018Q3

REPORT INFORMATION
  Report Type: Spontaneous
  Country: US (occurrence: US)
  Receive Date: 20180115
  Receipt Date: 20180806
  Transmission Date: 20181010
  Serious: No
  Sender: FDA-Public Use
  Company Number: PHEH2018US001792

PATIENT
  Sex: Male

DRUGS (2)
  1. TASIGNA [Suspect]
     Active Substance: NILOTINIB
     Indication: CHRONIC MYELOID LEUKAEMIA
     Dosage: 150 MG, BID
     Route: 048
     Dates: start: 20161108
  2. TASIGNA [Suspect]
     Active Substance: NILOTINIB
     Dosage: 150 MG/KG, BID
     Route: 048
     Dates: start: 20161109

REACTIONS (3)
  - Pharyngeal disorder [Not Recovered/Not Resolved]
  - Cardiac disorder [Unknown]
  - Cough [Not Recovered/Not Resolved]
